FAERS Safety Report 8866336 (Version 1)
Quarter: 2012Q4

REPORT INFORMATION
  Report Type: 
  Country: DK (occurrence: DK)
  Receive Date: 20121025
  Receipt Date: 20121025
  Transmission Date: 20130627
  Serious: Yes (Death)
  Sender: FDA-Public Use
  Company Number: DK-ROCHE-1149097

PATIENT

DRUGS (3)
  1. CAPECITABINE [Suspect]
     Indication: RECTAL CANCER
     Dosage: for 14 days followed by 7 days.
     Route: 048
  2. CAPECITABINE [Suspect]
     Dosage: on treatment days given with Radiotherapy
     Route: 048
  3. OXALIPLATIN [Suspect]
     Indication: RECTAL CANCER
     Route: 065

REACTIONS (1)
  - Death [Fatal]
